FAERS Safety Report 6973614-2 (Version None)
Quarter: 2010Q3

REPORT INFORMATION
  Report Type: 
  Country: None (occurrence: None)
  Receive Date: 20100909
  Receipt Date: 20100902
  Transmission Date: 20110219
  Serious: No
  Sender: FDA-Public Use
  Company Number: DK-PFIZER INC-2010050875

PATIENT
  Sex: Female

DRUGS (2)
  1. ZARATOR [Suspect]
     Dosage: UNK
     Route: 048
     Dates: end: 20090101
  2. SIMVASTATIN [Suspect]
     Indication: HYPERCHOLESTEROLAEMIA
     Dosage: 20 MG, 1X/DAY
     Route: 048
     Dates: start: 20030101, end: 20100201

REACTIONS (3)
  - CYSTITIS [None]
  - DYSURIA [None]
  - HAEMATURIA [None]
